FAERS Safety Report 7655089-3 (Version None)
Quarter: 2011Q3

REPORT INFORMATION
  Report Type: 
  Country: None (occurrence: None)
  Receive Date: 20110801
  Receipt Date: 20110713
  Transmission Date: 20111222
  Serious: Yes (Life-Threatening, Hospitalization, Other)
  Sender: FDA-Public Use
  Company Number: 2011MA008149

PATIENT
  Age: 15 Year
  Sex: Female

DRUGS (1)
  1. CARBAMAZEPINE [Suspect]
     Indication: INTENTIONAL OVERDOSE
     Dosage: 200 MG;1X;PO
     Route: 048

REACTIONS (5)
  - RESPIRATORY RATE INCREASED [None]
  - COMA [None]
  - MYDRIASIS [None]
  - INTENTIONAL OVERDOSE [None]
  - OXYGEN SATURATION DECREASED [None]
